FAERS Safety Report 8296273-8 (Version None)
Quarter: 2012Q2

REPORT INFORMATION
  Report Type: 
  Country: None (occurrence: None)
  Receive Date: 20120418
  Receipt Date: 20120411
  Transmission Date: 20120825
  Serious: Yes (Hospitalization)
  Sender: FDA-Public Use
  Company Number: NL-MEDIMMUNE-MEDI-0014297

PATIENT
  Sex: Male
  Weight: 7.48 kg

DRUGS (2)
  1. SYNAGIS [Suspect]
     Indication: PREMATURE BABY
     Route: 030
     Dates: start: 20110902, end: 20111025
  2. SYNAGIS [Suspect]
     Route: 030
     Dates: start: 20111122, end: 20120410

REACTIONS (4)
  - COUGH [None]
  - VIRAL INFECTION [None]
  - NASOPHARYNGITIS [None]
  - DYSPNOEA [None]
